FAERS Safety Report 13137200 (Version 1)
Quarter: 2017Q1

REPORT INFORMATION
  Report Type: Other
  Country: US (occurrence: US)
  Receive Date: 20170123
  Receipt Date: 20170123
  Transmission Date: 20170428
  Serious: No
  Sender: FDA-Public Use
  Company Number: US-UNITED THERAPEUTICS-UNT-2015-012263

PATIENT
  Sex: Female
  Weight: 96.6 kg

DRUGS (1)
  1. REMODULIN [Suspect]
     Active Substance: TREPROSTINIL
     Indication: PULMONARY ARTERIAL HYPERTENSION
     Dosage: 0.065 ?G/KG/MIN, CONTINUING
     Route: 041
     Dates: start: 20140515

REACTIONS (2)
  - Injection site pruritus [Unknown]
  - Injection site erythema [Unknown]
